FAERS Safety Report 16533736 (Version 1)
Quarter: 2019Q3

REPORT INFORMATION
  Report Type: Spontaneous
  Country: JP (occurrence: JP)
  Receive Date: 20190704
  Receipt Date: 20190704
  Transmission Date: 20191004
  Serious: Yes (Hospitalization, Other)
  Sender: FDA-Public Use
  Company Number: JP-SA-2019SA176249

PATIENT
  Age: 69 Year
  Sex: Male

DRUGS (3)
  1. CISPLATIN. [Suspect]
     Active Substance: CISPLATIN
     Indication: OROPHARYNGEAL SQUAMOUS CELL CARCINOMA
     Route: 042
  2. DOCETAXEL. [Suspect]
     Active Substance: DOCETAXEL
     Indication: OROPHARYNGEAL SQUAMOUS CELL CARCINOMA
     Dosage: UNK
  3. NIVOLUMAB [Suspect]
     Active Substance: NIVOLUMAB
     Indication: OROPHARYNGEAL SQUAMOUS CELL CARCINOMA
     Dosage: 3 MG/KG EVERY 2 WEEKS
     Route: 042

REACTIONS (11)
  - Nausea [Unknown]
  - Metastases to lymph nodes [Unknown]
  - Disease recurrence [Unknown]
  - Swelling [Unknown]
  - Adrenocorticotropic hormone deficiency [Recovering/Resolving]
  - Vomiting [Unknown]
  - Blood pressure decreased [Unknown]
  - Pyrexia [Unknown]
  - Shock [Unknown]
  - Fatigue [Unknown]
  - Decreased appetite [Unknown]
